FAERS Safety Report 5258672-8 (Version None)
Quarter: 2007Q1

REPORT INFORMATION
  Report Type: 
  Country: None (occurrence: None)
  Receive Date: 20070305
  Receipt Date: 20070221
  Transmission Date: 20070707
  Serious: Yes (Disabling)
  Sender: FDA-Public Use
  Company Number: 237150

PATIENT
  Age: 75 Year
  Sex: Female

DRUGS (5)
  1. MABTHERA(RITUXIMAB) CONC FOR SOLUTION FOR INFUSION [Suspect]
     Indication: RHEUMATOID ARTHRITIS
     Dosage: INTRAVENOUS
     Route: 042
  2. SOLUPRED (PREDNISOLONE) [Concomitant]
  3. NORCET (ACETAMINOPHEN, HYDROCODONE BITARTRATE) [Concomitant]
  4. LORAZEPAM [Concomitant]
  5. PROPOFAN (ACETAMINOPHEN, CAFFEINE, PROPOXYPHENE HYDROCHLORIDE) [Concomitant]

REACTIONS (4)
  - DISEASE RECURRENCE [None]
  - NEUROPATHY [None]
  - PAIN IN EXTREMITY [None]
  - SENSATION OF HEAVINESS [None]
